FAERS Safety Report 20328028 (Version 3)
Quarter: 2023Q1

REPORT INFORMATION
  Report Type: Spontaneous
  Country: US (occurrence: US)
  Receive Date: 20220112
  Receipt Date: 20230104
  Transmission Date: 20230418
  Serious: No
  Sender: FDA-Public Use
  Company Number: US-EVOFEM BIOSCIENCES, INC.-2021US002930

PATIENT

DRUGS (3)
  1. PHEXXI [Suspect]
     Active Substance: CITRIC ACID MONOHYDRATE\LACTIC ACID, L-\POTASSIUM BITARTRATE
     Indication: Contraception
     Dosage: UNK, AS DIRECTED
     Route: 067
     Dates: start: 20201123, end: 20210322
  2. ASPIRIN [Concomitant]
     Active Substance: ASPIRIN
     Indication: Product used for unknown indication
     Dosage: UNK
     Route: 048
  3. Covid-19 vaccine [Concomitant]
     Indication: Immunisation
     Dosage: UNK
     Route: 050

REACTIONS (4)
  - Hypertension [Recovered/Resolved]
  - Proteinuria [Recovered/Resolved]
  - Pregnancy [Recovered/Resolved]
  - Drug ineffective [Unknown]

NARRATIVE: CASE EVENT DATE: 20210505
